FAERS Safety Report 21179196 (Version 3)
Quarter: 2023Q2

REPORT INFORMATION
  Report Type: Report from Study
  Country: US (occurrence: US)
  Receive Date: 20220805
  Receipt Date: 20230518
  Transmission Date: 20230722
  Serious: Yes (Other)
  Sender: FDA-Public Use
  Company Number: US-JAZZ-2022-US-015793

PATIENT
  Sex: Female

DRUGS (5)
  1. XYWAV [Suspect]
     Active Substance: CALCIUM OXYBATE\MAGNESIUM OXYBATE\POTASSIUM OXYBATE\SODIUM OXYBATE
     Indication: Narcolepsy
     Dosage: UNK
     Route: 048
  2. XYWAV [Suspect]
     Active Substance: CALCIUM OXYBATE\MAGNESIUM OXYBATE\POTASSIUM OXYBATE\SODIUM OXYBATE
     Indication: Cataplexy
     Dosage: UNK
     Route: 048
  3. XYWAV [Suspect]
     Active Substance: CALCIUM OXYBATE\MAGNESIUM OXYBATE\POTASSIUM OXYBATE\SODIUM OXYBATE
     Indication: Somnolence
  4. RESTASIS [Suspect]
     Active Substance: CYCLOSPORINE
     Indication: Dry eye
  5. BONE UP [Concomitant]
     Indication: Osteopenia
     Dosage: UNK
     Dates: start: 20220301

REACTIONS (11)
  - BRCA1 gene mutation [Recovering/Resolving]
  - Dry eye [Unknown]
  - Flatulence [Unknown]
  - Rash [Unknown]
  - Medical procedure [Unknown]
  - Food allergy [Unknown]
  - Muscle spasms [Unknown]
  - Bone density decreased [Unknown]
  - Illness [Unknown]
  - Cough [Unknown]
  - Product administration interrupted [Unknown]
